FAERS Safety Report 24464410 (Version 1)
Quarter: 2024Q4

REPORT INFORMATION
  Report Type: Report from Study
  Country: CA (occurrence: CA)
  Receive Date: 20241018
  Receipt Date: 20241018
  Transmission Date: 20250115
  Serious: No
  Sender: ROCHE
  Company Number: CA-002147023-NVSC2023CA143830

PATIENT
  Age: 29 Year
  Sex: Male

DRUGS (3)
  1. XOLAIR [Suspect]
     Active Substance: OMALIZUMAB
     Indication: Chronic spontaneous urticaria
     Dosage: 300 MG, EVERY 4 WEEKS
     Route: 058
     Dates: start: 20220606
  2. CLARITIN [Concomitant]
     Active Substance: LORATADINE
     Indication: Chronic spontaneous urticaria
     Dosage: 4 DOSAGE FORM, QD
     Dates: start: 2013
  3. CETIRIZINE HYDROCHLORIDE [Concomitant]
     Active Substance: CETIRIZINE HYDROCHLORIDE
     Indication: Product used for unknown indication
     Dosage: 4 DOSAGE FORM, BID
     Dates: start: 2012

REACTIONS (4)
  - Haemorrhage [Unknown]
  - Urticaria [Not Recovered/Not Resolved]
  - Chronic spontaneous urticaria [Not Recovered/Not Resolved]
  - Condition aggravated [Not Recovered/Not Resolved]

NARRATIVE: CASE EVENT DATE: 20230606
